FAERS Safety Report 9405672 (Version 1)
Quarter: 2013Q3

REPORT INFORMATION
  Report Type: Spontaneous
  Country: CO (occurrence: CO)
  Receive Date: 20130717
  Receipt Date: 20130717
  Transmission Date: 20140515
  Serious: Yes (Other)
  Sender: FDA-Public Use
  Company Number: CO-PFIZER INC-2013207551

PATIENT
  Age: 61 Year
  Sex: Female

DRUGS (3)
  1. SUTENT [Suspect]
     Indication: RENAL CANCER METASTATIC
     Dosage: 50 MG, 1X/DAY
     Route: 048
     Dates: start: 2009
  2. SUTENT [Suspect]
     Dosage: 12.5 MG, UNK
     Route: 048
  3. COLOSTRUM [Concomitant]
     Indication: PROPHYLAXIS
     Dosage: UNK
     Route: 048
     Dates: end: 2011

REACTIONS (6)
  - Brain injury [Recovered/Resolved]
  - Oral mucosal blistering [Recovered/Resolved]
  - Vaginal mucosal blistering [Recovered/Resolved]
  - Nail pigmentation [Recovered/Resolved]
  - Glossodynia [Recovered/Resolved]
  - Eating disorder [Recovered/Resolved]
